FAERS Safety Report 4715684-8 (Version None)
Quarter: 2005Q3

REPORT INFORMATION
  Report Type: 
  Country: None (occurrence: None)
  Receive Date: 20050712
  Receipt Date: 20050629
  Transmission Date: 20060218
  Serious: Yes (Hospitalization, Other)
  Sender: FDA-Public Use
  Company Number: 2005083980

PATIENT
  Age: 78 Year
  Sex: Female

DRUGS (10)
  1. ATARAX [Suspect]
     Indication: ILL-DEFINED DISORDER
     Dosage: ORAL
     Route: 048
     Dates: end: 20050502
  2. PAROXETINE HYDROCHLORIDE [Suspect]
     Indication: ILL-DEFINED DISORDER
     Dosage: ORAL
     Route: 048
     Dates: end: 20050502
  3. TRIHEXYPHENIDYL HCL [Suspect]
     Indication: DYSKINESIA
     Dosage: 4 MG (1 D), ORAL
     Route: 048
     Dates: start: 20050427, end: 20050502
  4. SECTRAL [Suspect]
     Indication: ILL-DEFINED DISORDER
     Dosage: ORAL
     Route: 048
  5. LASIX [Suspect]
     Indication: ILL-DEFINED DISORDER
     Dosage: ORAL
     Route: 048
  6. INEXIUM (ESOMEPRAZOLE MAGNESIUM) [Suspect]
     Indication: ILL-DEFINED DISORDER
     Dosage: ORAL
     Route: 048
  7. ALMITRINE DIMESILATE [Concomitant]
  8. NICARDIPINE HCL [Concomitant]
  9. MACROGOL [Concomitant]
  10. ACETAMINOPHEN [Concomitant]

REACTIONS (12)
  - ABDOMINAL PAIN UPPER [None]
  - ANTICHOLINERGIC SYNDROME [None]
  - DEHYDRATION [None]
  - DEPRESSED LEVEL OF CONSCIOUSNESS [None]
  - DRY MOUTH [None]
  - DYSKINESIA [None]
  - HYPERTHERMIA [None]
  - RENAL COLIC [None]
  - RENAL DISORDER [None]
  - RENAL FAILURE [None]
  - RESTLESSNESS [None]
  - VOMITING [None]
